FAERS Safety Report 5579825-5 (Version None)
Quarter: 2008Q1

REPORT INFORMATION
  Report Type: 
  Country: None (occurrence: None)
  Receive Date: 20080102
  Receipt Date: 20071221
  Transmission Date: 20080703
  Serious: Yes (Other)
  Sender: FDA-Public Use
  Company Number: US-PFIZER INC-2007108464

PATIENT
  Sex: Female
  Weight: 45.4 kg

DRUGS (4)
  1. CHANTIX [Suspect]
     Indication: SMOKING CESSATION THERAPY
  2. PREDNISONE [Concomitant]
  3. CYCLOSPORINE [Concomitant]
  4. ANTIBIOTICS [Concomitant]

REACTIONS (2)
  - EMPHYSEMA [None]
  - LUNG DISORDER [None]
